FAERS Safety Report 17857469 (Version 27)
Quarter: 2022Q3

REPORT INFORMATION
  Report Type: Spontaneous
  Country: GB (occurrence: GB)
  Receive Date: 20200604
  Receipt Date: 20220915
  Transmission Date: 20221027
  Serious: Yes (Life-Threatening, Hospitalization, Disabling, Congenital Anomaly, Other)
  Sender: FDA-Public Use
  Company Number: GB-MHRA-EYC 00070456

PATIENT
  Age: 31 Year
  Sex: Female
  Weight: 63.5 kg

DRUGS (88)
  1. CODEINE PHOSPHATE [Interacting]
     Active Substance: CODEINE PHOSPHATE
     Indication: Analgesic therapy
     Dosage: UNK
     Route: 048
     Dates: start: 2002, end: 2002
  2. CODEINE PHOSPHATE [Interacting]
     Active Substance: CODEINE PHOSPHATE
     Indication: Serotonin syndrome
     Dosage: UNK
     Route: 048
     Dates: start: 2008, end: 2008
  3. CODEINE PHOSPHATE [Interacting]
     Active Substance: CODEINE PHOSPHATE
     Dosage: UNK
     Route: 048
     Dates: start: 20110224, end: 20110410
  4. CODEINE PHOSPHATE [Interacting]
     Active Substance: CODEINE PHOSPHATE
     Dosage: 1 DOSAGE FORM, ONCE A DAY UNSURE
     Route: 048
     Dates: start: 20110615, end: 20110723
  5. DOMPERIDONE [Interacting]
     Active Substance: DOMPERIDONE
     Indication: Product used for unknown indication
     Dosage: UNK
     Route: 048
     Dates: start: 20100923, end: 20101108
  6. LORAZEPAM [Suspect]
     Active Substance: LORAZEPAM
     Indication: Product used for unknown indication
     Dosage: 1 MILLIGRAM
     Route: 048
     Dates: start: 20110725
  7. LORAZEPAM [Suspect]
     Active Substance: LORAZEPAM
     Dosage: 1 MILLIGRAM, ONCE A DAY (1 MG, 4 TIMES PER DAY)
     Route: 065
     Dates: start: 20110224, end: 20110410
  8. LORAZEPAM [Suspect]
     Active Substance: LORAZEPAM
     Dosage: 1 UNK
     Route: 065
     Dates: start: 20110523, end: 20110627
  9. LORAZEPAM [Suspect]
     Active Substance: LORAZEPAM
     Dosage: 4 MILLIGRAM, ONCE A DAY
     Route: 065
     Dates: start: 20110523, end: 20110627
  10. MIRTAZAPINE [Interacting]
     Active Substance: MIRTAZAPINE
     Indication: Depression
     Dosage: 30MG IN THE DAY AND 15MG AT NIGHT
     Route: 065
  11. MIRTAZAPINE [Interacting]
     Active Substance: MIRTAZAPINE
     Indication: Psychotic disorder
     Dosage: 30 MILLIGRAM, ONCE A DAY
     Route: 048
     Dates: start: 20100923, end: 20101108
  12. MIRTAZAPINE [Interacting]
     Active Substance: MIRTAZAPINE
     Dosage: 30 MILLIGRAM, ONCE A DAY
     Route: 048
     Dates: start: 20101007, end: 20101012
  13. MIRTAZAPINE [Interacting]
     Active Substance: MIRTAZAPINE
     Dosage: 15 MILLIGRAM, ONCE A DAY(15 MG, QD (30 MG IN THE DAY AND 15 MG AT NIGHT, TABLET) )
     Route: 048
     Dates: start: 20101007, end: 20101012
  14. MIRTAZAPINE [Interacting]
     Active Substance: MIRTAZAPINE
     Dosage: 15 MILLIGRAM(30MG IN THE DAY AND 15MG AT NIGHT )
     Route: 065
     Dates: start: 20110224, end: 20110506
  15. MIRTAZAPINE [Interacting]
     Active Substance: MIRTAZAPINE
     Dosage: 30 MILLIGRAM
     Route: 065
     Dates: start: 20110224, end: 20110506
  16. MIRTAZAPINE [Interacting]
     Active Substance: MIRTAZAPINE
     Dosage: 15 MILLIGRAM, TWO TIMES A DAY
     Route: 048
     Dates: start: 20100923, end: 20101108
  17. PAROXETINE [Suspect]
     Active Substance: PAROXETINE
     Indication: Post-traumatic stress disorder
     Dosage: 40 MILLIGRAM, ONCE A DAY
     Route: 048
     Dates: start: 19990801, end: 20110706
  18. PAROXETINE [Suspect]
     Active Substance: PAROXETINE
     Dosage: 60 MILLIGRAM, ONCE A DAY
     Route: 048
     Dates: start: 1999, end: 201105
  19. PAROXETINE [Suspect]
     Active Substance: PAROXETINE
     Dosage: UNK
     Route: 065
     Dates: start: 201012
  20. PAROXETINE [Suspect]
     Active Substance: PAROXETINE
     Dosage: 20 MILLIGRAM, ONCE A DAY (20 MG, 3 TIMES PER DAY)
     Route: 048
     Dates: start: 1997, end: 201105
  21. PAROXETINE [Suspect]
     Active Substance: PAROXETINE
     Dosage: 60 MILLIGRAM, ONCE A DAY
     Route: 048
     Dates: start: 19990801, end: 201105
  22. PAROXETINE [Suspect]
     Active Substance: PAROXETINE
     Dosage: 40 MILLIGRAM, ONCE A DAY
     Route: 048
     Dates: start: 201105, end: 20110706
  23. PAROXETINE [Interacting]
     Active Substance: PAROXETINE
     Indication: Post-traumatic stress disorder
     Dosage: UNK
     Route: 048
     Dates: start: 1996, end: 201105
  24. PAROXETINE [Interacting]
     Active Substance: PAROXETINE
     Indication: Depression
     Dosage: 20 MILLIGRAM, 3 TIMES A DAY
     Route: 048
     Dates: start: 19990801, end: 201105
  25. PAROXETINE [Interacting]
     Active Substance: PAROXETINE
     Dosage: 40 MILLIGRAM, ONCE A DAY
     Route: 048
     Dates: start: 19990801, end: 20110706
  26. PAROXETINE [Interacting]
     Active Substance: PAROXETINE
     Dosage: 40 MILLIGRAM, ONCE A DAY (20 MG THREE TIMES A DAY)
     Route: 048
     Dates: start: 201105, end: 20110706
  27. PAROXETINE [Interacting]
     Active Substance: PAROXETINE
     Dosage: UNK
     Route: 048
     Dates: start: 200812, end: 20101210
  28. PAROXETINE [Interacting]
     Active Substance: PAROXETINE
     Dosage: 60 MILLIGRAM
     Route: 048
     Dates: start: 19990801, end: 201105
  29. PAROXETINE [Interacting]
     Active Substance: PAROXETINE
     Dosage: UNK
     Route: 048
     Dates: start: 201012
  30. PAROXETINE [Interacting]
     Active Substance: PAROXETINE
     Dosage: 60 MILLIGRAM (20 MILLIGRAM, 60 MG (20 MG TID INTERRUPTED)  3 TIMES A DAY)
     Route: 048
     Dates: start: 1997, end: 201105
  31. PAROXETINE [Interacting]
     Active Substance: PAROXETINE
     Dosage: 60 MILLIGRAM, ONCE A DAY (20 MG THREE TIMES A DAY)
     Route: 048
     Dates: start: 199908, end: 201105
  32. QUETIAPINE [Interacting]
     Active Substance: QUETIAPINE
     Indication: Psychotic disorder
     Dosage: UNK
     Route: 048
     Dates: start: 19990801, end: 20110706
  33. QUETIAPINE [Interacting]
     Active Substance: QUETIAPINE
     Dosage: 300 MILLIGRAM
     Route: 048
     Dates: start: 20110224, end: 20110506
  34. TRAMADOL [Interacting]
     Active Substance: TRAMADOL
     Indication: Neck pain
     Dosage: 5 MILLIGRAM, ONCE A DAY
     Route: 048
     Dates: start: 1995, end: 1996
  35. TRAMADOL [Interacting]
     Active Substance: TRAMADOL
     Indication: Analgesic therapy
     Dosage: 4 CYCLICAL, ONCE A DAY (50-100MG) (2008/2009, DRUG START/DRUG WITHDRAWN)
     Route: 048
     Dates: start: 20080722
  36. TRAMADOL [Interacting]
     Active Substance: TRAMADOL
     Indication: Oculogyric crisis
     Dosage: 4 CYCLICAL, ONCE A DAY (50-100 MG QD)
     Route: 048
     Dates: start: 20081201, end: 20101210
  37. TRAMADOL [Interacting]
     Active Substance: TRAMADOL
     Indication: Back pain
     Dosage: UNK (UNSURE)
     Route: 048
     Dates: start: 20081201, end: 20101210
  38. TRAMADOL [Interacting]
     Active Substance: TRAMADOL
     Dosage: UNK
     Route: 048
     Dates: start: 2008, end: 2009
  39. TRAMADOL [Interacting]
     Active Substance: TRAMADOL
     Dosage: 8 MILLIGRAM,(8 MG, QD ) ONCE A DAY
     Route: 065
  40. TRAMADOL [Interacting]
     Active Substance: TRAMADOL
     Dosage: 1 DOSAGE FORM
     Route: 065
  41. TRAMADOL [Interacting]
     Active Substance: TRAMADOL
     Dosage: 4 DOSAGE FORM
     Route: 065
  42. TRAMADOL [Interacting]
     Active Substance: TRAMADOL
     Dosage: 20 MILLIGRAM
     Route: 065
     Dates: start: 20110725
  43. TRAMADOL [Interacting]
     Active Substance: TRAMADOL
     Dosage: UNK
     Route: 048
     Dates: start: 20080722
  44. TRAMADOL [Interacting]
     Active Substance: TRAMADOL
     Dosage: 8 MILLIGRAM (8 MG, QD TABLET (8 MG, QD))
     Route: 048
     Dates: start: 20110725
  45. TRAMADOL [Interacting]
     Active Substance: TRAMADOL
     Dosage: 5 MILLIGRAM, ONCE A DAY
     Route: 044
     Dates: start: 1995, end: 1996
  46. TRAMADOL [Interacting]
     Active Substance: TRAMADOL
     Dosage: 1 DOSAGE FORM (1 DOSAGE FORM, QD (5 MG QDS AND NOW ON 2-2-4 MG))
     Route: 065
     Dates: start: 20110725
  47. QUETIAPINE [Suspect]
     Active Substance: QUETIAPINE
     Indication: Psychotic disorder
     Dosage: 300 MILLIGRAM
     Route: 048
     Dates: start: 20110224, end: 20110506
  48. MIRTAZAPINE [Interacting]
     Active Substance: MIRTAZAPINE
     Indication: Depression
     Dosage: 30 MILLIGRAM (UNSURE) (30 MG, QD (30 MG IN THE DAY AND 15 MG AT NIGHT,TABLET) TABLET)
     Route: 048
     Dates: start: 20100923, end: 20101108
  49. MIRTAZAPINE [Interacting]
     Active Substance: MIRTAZAPINE
     Dosage: 30 MILLIGRAM ((UNSURE, DRUG WITHDRAWN))
     Route: 048
     Dates: start: 20101007, end: 20101012
  50. MIRTAZAPINE [Interacting]
     Active Substance: MIRTAZAPINE
     Dosage: 30 MILLIGRAM, ONCE A DAY (30MG IN THE DAY AND 15MG AT NIGHT)
     Route: 065
     Dates: start: 20110224, end: 20110506
  51. MIRTAZAPINE [Interacting]
     Active Substance: MIRTAZAPINE
     Dosage: 30 MILLIGRAM (30MG IN THE DAY AND 15MG AT NIGHT))
     Route: 065
  52. MIRTAZAPINE [Interacting]
     Active Substance: MIRTAZAPINE
     Dosage: 15 MILLIGRAM, ONCE A DAY(30 MG IN THE DAY AND 15 MG AT NIGHT, TABLET)
     Route: 048
     Dates: start: 20101007, end: 20101012
  53. MIRTAZAPINE [Interacting]
     Active Substance: MIRTAZAPINE
     Dosage: 15 MILLIGRAM
     Route: 065
     Dates: start: 20110224, end: 20110506
  54. AMITRIPTYLINE [Interacting]
     Active Substance: AMITRIPTYLINE
     Indication: Muscle spasms
     Dosage: UNK UNK, ONCE A DAY,AT NIGHT
     Route: 065
  55. AMITRIPTYLINE [Interacting]
     Active Substance: AMITRIPTYLINE
     Indication: Serotonin syndrome
     Dosage: 25 MILLIGRAM, ONCE A DAY(25MG AT NIGHT)
     Route: 065
     Dates: start: 20110810
  56. AMITRIPTYLINE [Interacting]
     Active Substance: AMITRIPTYLINE
     Indication: Neuralgia
     Dosage: 4 CYCLICAL, QD
     Route: 065
     Dates: start: 20080722
  57. AMITRIPTYLINE [Interacting]
     Active Substance: AMITRIPTYLINE
     Indication: Analgesic therapy
  58. AMITRIPTYLINE [Interacting]
     Active Substance: AMITRIPTYLINE
     Indication: Drug withdrawal syndrome
  59. CLONAZEPAM [Interacting]
     Active Substance: CLONAZEPAM
     Indication: Sedation
     Dosage: UNK (UNSURE)
     Route: 048
     Dates: start: 20110224, end: 20110410
  60. DIAZEPAM [Interacting]
     Active Substance: DIAZEPAM
     Indication: Serotonin syndrome
     Dosage: 5 MILLIGRAM, FOUR TIMES/DAY
     Route: 048
     Dates: start: 20110725
  61. DIAZEPAM [Interacting]
     Active Substance: DIAZEPAM
     Indication: Muscle spasms
     Dosage: 8 MILLIGRAM, ONCE A DAY
     Route: 048
     Dates: start: 20110725
  62. DIAZEPAM [Interacting]
     Active Substance: DIAZEPAM
     Indication: Depression
     Dosage: 20 MILLIGRAM(QD 5 MILLIGRAM, QID (5 MG QDS AND NOW ON 2-2-4 MG) )
     Route: 048
     Dates: start: 20110725, end: 20110725
  63. LORAZEPAM [Interacting]
     Active Substance: LORAZEPAM
     Indication: Sedation
     Dosage: 4 MILLIGRAM, FOUR TIMES/DAY(4 MG, QD (1 MG, QID)
     Route: 048
     Dates: start: 20110202, end: 20110410
  64. LORAZEPAM [Interacting]
     Active Substance: LORAZEPAM
     Dosage: 1 MILLIGRAM
     Route: 048
     Dates: start: 20110224, end: 20110410
  65. LORAZEPAM [Interacting]
     Active Substance: LORAZEPAM
     Dosage: 1 MILLIGRAM, FOUR TIMES/DAY
     Route: 048
     Dates: start: 20110523, end: 20110627
  66. LORAZEPAM [Interacting]
     Active Substance: LORAZEPAM
     Dosage: 4 MILLIGRAM
     Route: 048
     Dates: start: 20110523, end: 20110627
  67. LORAZEPAM [Interacting]
     Active Substance: LORAZEPAM
     Dosage: 1 MILLIGRAM
     Route: 048
     Dates: start: 20110523, end: 20110627
  68. LORAZEPAM [Interacting]
     Active Substance: LORAZEPAM
     Dosage: 1 MILLIGRAM
     Route: 048
     Dates: start: 20110725
  69. LORAZEPAM [Interacting]
     Active Substance: LORAZEPAM
     Dosage: 16 MILLIGRAM
     Route: 048
     Dates: start: 20110224, end: 20110410
  70. LORAZEPAM [Interacting]
     Active Substance: LORAZEPAM
     Dosage: 4 MILLIGRAM
     Route: 048
     Dates: start: 20110224, end: 20110410
  71. OMEPRAZOLE [Interacting]
     Active Substance: OMEPRAZOLE
     Indication: Dyspepsia
     Dosage: 20 MILLIGRAM, ONCE A DAY
     Route: 048
     Dates: start: 20110525
  72. PROCYCLIDINE [Interacting]
     Active Substance: PROCYCLIDINE
     Indication: Extrapyramidal disorder
     Dosage: 5 MILLIGRAM
     Route: 048
     Dates: start: 1995, end: 1995
  73. PROCYCLIDINE [Interacting]
     Active Substance: PROCYCLIDINE
     Indication: Oculogyric crisis
     Dosage: 20 MILLIGRAM
     Route: 048
     Dates: start: 20110324, end: 20110506
  74. PROCYCLIDINE [Interacting]
     Active Substance: PROCYCLIDINE
     Indication: Extrapyramidal disorder
     Dosage: 20 MILLIGRAM, ONCE A DAY
     Route: 065
     Dates: start: 20110415
  75. PROCYCLIDINE [Interacting]
     Active Substance: PROCYCLIDINE
     Dosage: 5 MILLIGRAM, 3 TIMES A DAY
     Route: 048
     Dates: start: 20110503, end: 20110510
  76. PROCYCLIDINE [Interacting]
     Active Substance: PROCYCLIDINE
     Dosage: 5 MILLIGRAM, ONCE A DAY
     Route: 048
     Dates: start: 20110505, end: 20110510
  77. PROCYCLIDINE [Interacting]
     Active Substance: PROCYCLIDINE
     Dosage: 15 MILLIGRAM, ONCE A DAY((5 MG TID) )
     Route: 048
     Dates: start: 20110503, end: 20110510
  78. PHOSPHORUS [Interacting]
     Active Substance: PHOSPHORUS
     Indication: Product used for unknown indication
     Dosage: UNK
     Route: 065
  79. PAROXETINE HYDROCHLORIDE [Interacting]
     Active Substance: PAROXETINE HYDROCHLORIDE
     Indication: Depression
     Dosage: 60 MILLIGRAM, ONCE A DAY ((20 MG INTERRUPTED))
     Route: 048
     Dates: start: 1997, end: 201105
  80. PAROXETINE HYDROCHLORIDE [Interacting]
     Active Substance: PAROXETINE HYDROCHLORIDE
     Dosage: UNK
     Route: 048
     Dates: start: 1999
  81. PAROXETINE HYDROCHLORIDE [Interacting]
     Active Substance: PAROXETINE HYDROCHLORIDE
     Dosage: 20 MILLIGRAM, ONCE A DAY (20 MG, TID (60 MG, QD))
     Route: 048
     Dates: start: 19990801, end: 201105
  82. PAROXETINE HYDROCHLORIDE [Interacting]
     Active Substance: PAROXETINE HYDROCHLORIDE
     Dosage: 40 MILLIGRAM, ONCE A DAY
     Route: 048
     Dates: start: 201105, end: 20110706
  83. PAROXETINE HYDROCHLORIDE [Interacting]
     Active Substance: PAROXETINE HYDROCHLORIDE
     Dosage: UNK
     Route: 048
     Dates: start: 201012
  84. PAROXETINE HYDROCHLORIDE [Interacting]
     Active Substance: PAROXETINE HYDROCHLORIDE
     Dosage: 20 MILLIGRAM
     Route: 048
     Dates: start: 201105, end: 20110706
  85. PAROXETINE HYDROCHLORIDE [Interacting]
     Active Substance: PAROXETINE HYDROCHLORIDE
     Dosage: 60 MILLIGRAM, ONCE A DAY (20MG THREE TIMES PER DAY)
     Route: 048
     Dates: start: 19990801, end: 201105
  86. PAROXETINE HYDROCHLORIDE [Interacting]
     Active Substance: PAROXETINE HYDROCHLORIDE
     Dosage: 20 MILLIGRAM, TWO TIMES A DAY
     Route: 048
     Dates: start: 2011, end: 20110706
  87. PAROXETINE HYDROCHLORIDE [Interacting]
     Active Substance: PAROXETINE HYDROCHLORIDE
     Dosage: 1 DOSAGE FORM, ONCE A DAY
     Route: 048
     Dates: start: 200812, end: 20101210
  88. PAROXETINE HYDROCHLORIDE [Interacting]
     Active Substance: PAROXETINE HYDROCHLORIDE
     Dosage: 20 MILLIGRAM, ONCE A DAY
     Route: 048
     Dates: start: 1997

REACTIONS (90)
  - Contusion [Not Recovered/Not Resolved]
  - Seizure [Not Recovered/Not Resolved]
  - Speech disorder [Not Recovered/Not Resolved]
  - Heart rate increased [Unknown]
  - Disorientation [Not Recovered/Not Resolved]
  - Drug withdrawal syndrome [Unknown]
  - Dystonia [Unknown]
  - Muscle rigidity [Not Recovered/Not Resolved]
  - Feeling of body temperature change [Unknown]
  - Pyrexia [Unknown]
  - Agitation [Unknown]
  - Arthralgia [Unknown]
  - Restlessness [Not Recovered/Not Resolved]
  - Musculoskeletal stiffness [Not Recovered/Not Resolved]
  - Muscle disorder [Unknown]
  - Muscle spasms [Not Recovered/Not Resolved]
  - Neuroleptic malignant syndrome [Unknown]
  - Nightmare [Unknown]
  - Hypoaesthesia oral [Not Recovered/Not Resolved]
  - Pallor [Unknown]
  - Paralysis [Unknown]
  - Premature labour [Not Recovered/Not Resolved]
  - Mydriasis [Unknown]
  - Serotonin syndrome [Not Recovered/Not Resolved]
  - Illness [Unknown]
  - Skin discolouration [Not Recovered/Not Resolved]
  - Aphasia [Not Recovered/Not Resolved]
  - Suicidal ideation [Not Recovered/Not Resolved]
  - Swollen tongue [Unknown]
  - Fatigue [Unknown]
  - Feeling jittery [Unknown]
  - Vision blurred [Unknown]
  - Swelling face [Unknown]
  - Hyperhidrosis [Unknown]
  - Parosmia [Unknown]
  - Restless legs syndrome [Not Recovered/Not Resolved]
  - Tinnitus [Unknown]
  - Disturbance in attention [Unknown]
  - Sensory loss [Unknown]
  - Headache [Unknown]
  - Vomiting [Unknown]
  - Eye pain [Unknown]
  - Incontinence [Not Recovered/Not Resolved]
  - Sleep disorder [Unknown]
  - Paraesthesia [Unknown]
  - Tremor [Not Recovered/Not Resolved]
  - Delirium [Unknown]
  - Hallucinations, mixed [Unknown]
  - Mood swings [Unknown]
  - Pruritus [Unknown]
  - Emotional disorder [Unknown]
  - H1N1 influenza [Unknown]
  - Anxiety [Unknown]
  - Psychotic disorder [Recovered/Resolved]
  - Schizophrenia [Unknown]
  - Depersonalisation/derealisation disorder [Not Recovered/Not Resolved]
  - Cogwheel rigidity [Unknown]
  - Mania [Unknown]
  - Menstrual disorder [Unknown]
  - Depression [Unknown]
  - Dyskinesia [Unknown]
  - Decreased appetite [Unknown]
  - Dizziness [Unknown]
  - Derealisation [Not Recovered/Not Resolved]
  - Diarrhoea [Unknown]
  - Blood sodium decreased [Unknown]
  - Dissociation [Not Recovered/Not Resolved]
  - Gait disturbance [Unknown]
  - Visual impairment [Unknown]
  - Hypoaesthesia [Not Recovered/Not Resolved]
  - Urinary retention [Unknown]
  - Asthenia [Unknown]
  - Gastric pH decreased [Unknown]
  - Feeling of despair [Unknown]
  - Dyspnoea [Unknown]
  - Tachycardia [Unknown]
  - Balance disorder [Unknown]
  - Somnolence [Not Recovered/Not Resolved]
  - Limb injury [Unknown]
  - Toxicity to various agents [Unknown]
  - Exposure during pregnancy [Unknown]
  - Therapeutic product ineffective [Unknown]
  - Drug interaction [Unknown]
  - Cyanosis [Unknown]
  - Drooling [Unknown]
  - Confusional state [Not Recovered/Not Resolved]
  - Hallucination [Unknown]
  - Maternal exposure during pregnancy [Unknown]
  - Off label use [Unknown]
  - Drug ineffective [Unknown]

NARRATIVE: CASE EVENT DATE: 20030101
